FAERS Safety Report 13134159 (Version 1)
Quarter: 2017Q1

REPORT INFORMATION
  Report Type: Report from Study
  Country: US (occurrence: US)
  Receive Date: 20170120
  Receipt Date: 20170120
  Transmission Date: 20170428
  Serious: Yes (Death, Hospitalization)
  Sender: FDA-Public Use
  Company Number: US-ASTRAZENECA-2017SE05841

PATIENT

DRUGS (1)
  1. MERREM [Suspect]
     Active Substance: MEROPENEM
     Route: 042

REACTIONS (1)
  - Death [Fatal]
